FAERS Safety Report 4381174-8 (Version None)
Quarter: 2004Q2

REPORT INFORMATION
  Report Type: 
  Country: None (occurrence: None)
  Receive Date: 20040617
  Receipt Date: 20040617
  Transmission Date: 20050107
  Serious: Yes (Life-Threatening)
  Sender: FDA-Public Use
  Company Number: None

PATIENT
  Age: 66 Year
  Sex: Female

DRUGS (9)
  1. VASOTEC [Suspect]
     Indication: HYPERTENSION
     Dosage: 10 MG PO DAILY
     Route: 048
     Dates: start: 20040510, end: 20040512
  2. ATENOLOL [Concomitant]
  3. HALDOL [Concomitant]
  4. THORAZINE [Concomitant]
  5. SYNTHROID [Concomitant]
  6. COGENTIN [Concomitant]
  7. OSCAL D [Concomitant]
  8. COUMADIN [Concomitant]
  9. COLACE [Concomitant]

REACTIONS (1)
  - ANGIONEUROTIC OEDEMA [None]
